FAERS Safety Report 22527675 (Version 14)
Quarter: 2023Q4

REPORT INFORMATION
  Report Type: Report from Study
  Country: RU (occurrence: RU)
  Receive Date: 20230606
  Receipt Date: 20231210
  Transmission Date: 20240109
  Serious: Yes (Other)
  Sender: FDA-Public Use
  Company Number: RU-002147023-NVSC2023RU121992

PATIENT
  Age: 16 Month
  Sex: Female
  Weight: 11.1 kg

DRUGS (4)
  1. ZOLGENSMA [Suspect]
     Active Substance: ONASEMNOGENE ABEPARVOVEC-XIOI
     Indication: Spinal muscular atrophy
     Dosage: 60.5 ML, ONCE/SINGLE (DROPWISE I.V. INFUSION)
     Route: 042
     Dates: start: 20230411, end: 20230411
  2. ZOLGENSMA [Suspect]
     Active Substance: ONASEMNOGENE ABEPARVOVEC-XIOI
     Dosage: 1 MG/KG, ONCE/SINGLE
     Route: 065
     Dates: start: 20230411, end: 20230411
  3. VITAMIN D NOS [Concomitant]
     Active Substance: VITAMIN D NOS
     Indication: Product used for unknown indication
     Dosage: 4 DRP, QD (2000 IU, IN THE EVENING)
     Route: 065
     Dates: start: 20230419
  4. VITAMIN D NOS [Concomitant]
     Active Substance: VITAMIN D NOS
     Dosage: UNK, QD (1500-2000 IU) (DAILY AFTER BREAKFAST)
     Route: 065

REACTIONS (3)
  - Pyelocaliectasis [Not Recovered/Not Resolved]
  - Hepatomegaly [Not Recovered/Not Resolved]
  - Blood test abnormal [Recovering/Resolving]

NARRATIVE: CASE EVENT DATE: 20230412
